FAERS Safety Report 9433756 (Version 3)
Quarter: 2015Q1

REPORT INFORMATION
  Report Type: Spontaneous
  Country: GB (occurrence: None)
  Receive Date: 20130729
  Receipt Date: 20150109
  Transmission Date: 20150721
  Serious: Yes (Life-Threatening, Hospitalization)
  Sender: FDA-Public Use
  Company Number: 1809721

PATIENT
  Age: 15 Year
  Sex: Male
  Weight: 42 kg

DRUGS (14)
  1. METHOTREXATE [Suspect]
     Active Substance: METHOTREXATE
     Indication: ANAPLASTIC LARGE-CELL LYMPHOMA
     Dosage: INTRAVENOUS (NOT OTHERWISE SPECIFIED)?
     Route: 042
     Dates: start: 20130619, end: 20130619
  2. PARACETAMOL [Concomitant]
     Active Substance: ACETAMINOPHEN
  3. CODEINE [Concomitant]
     Active Substance: CODEINE
  4. CYTARABINE. [Concomitant]
     Active Substance: CYTARABINE
  5. LANSOPRAZOLE. [Suspect]
     Active Substance: LANSOPRAZOLE
     Indication: DYSPEPSIA
     Route: 048
     Dates: start: 20130525, end: 20130621
  6. PIPERACILLIN/TAZOBACTAM [Concomitant]
     Active Substance: PIPERACILLIN SODIUM\TAZOBACTAM SODIUM
  7. ONDANSETRON [Concomitant]
     Active Substance: ONDANSETRON
  8. IFOSEMIDE [Concomitant]
  9. DEXAMETHASONE. [Concomitant]
     Active Substance: DEXAMETHASONE
  10. LEVOMEPROMAZINE [Concomitant]
     Active Substance: LEVOMEPROMAZINE
  11. MESNA. [Concomitant]
     Active Substance: MESNA
  12. GENTAMICIN. [Concomitant]
     Active Substance: GENTAMICIN
  13. ETOPOSIDE. [Concomitant]
     Active Substance: ETOPOSIDE
  14. CALCIUM FOLINATE [Concomitant]
     Active Substance: LEUCOVORIN CALCIUM

REACTIONS (5)
  - Tubulointerstitial nephritis [None]
  - Pancreatitis [None]
  - White blood cell count increased [None]
  - Acute kidney injury [None]
  - Renal failure [None]
